FAERS Safety Report 18642435 (Version 1)
Quarter: 2020Q4

REPORT INFORMATION
  Report Type: Spontaneous
  Country: US (occurrence: US)
  Receive Date: 20201221
  Receipt Date: 20201221
  Transmission Date: 20210114
  Serious: Yes (Other)
  Sender: FDA-Public Use
  Company Number: US-DRREDDYS-USA/USA/20/0130145

PATIENT
  Sex: Male

DRUGS (1)
  1. BUPRENORPHINE AND NALOXONE SUBLINGUAL FILM 2 MG/0.5 MG AND 8MG/2MG [Suspect]
     Active Substance: BUPRENORPHINE\NALOXONE
     Indication: DRUG DEPENDENCE
     Dosage: BUPRENORPHINE AND NALOXONE 2 MG/0.5 MG, TAKES A HALF FILM IN THE MORNING, AFTERNOON AND NIGHT.
     Route: 060

REACTIONS (7)
  - Drug ineffective [Unknown]
  - Withdrawal syndrome [Unknown]
  - Memory impairment [Unknown]
  - Feeling abnormal [Unknown]
  - Irritability [Unknown]
  - Wrong technique in product usage process [Unknown]
  - Product quality issue [Unknown]
